FAERS Safety Report 4942423-8 (Version None)
Quarter: 2006Q1

REPORT INFORMATION
  Report Type: 
  Country: None (occurrence: None)
  Receive Date: 20060313
  Receipt Date: 20050207
  Transmission Date: 20060701
  Serious: No
  Sender: FDA-Public Use
  Company Number: US-GLAXOSMITHKLINE-A0544162A

PATIENT
  Age: 23 Year
  Sex: Male

DRUGS (2)
  1. NICORETTE (ORANGE) [Suspect]
     Dates: start: 20050126, end: 20050201
  2. ZYBAN [Concomitant]

REACTIONS (2)
  - DRUG INEFFECTIVE [None]
  - NICOTINE DEPENDENCE [None]
